FAERS Safety Report 5797283-2 (Version None)
Quarter: 2008Q2

REPORT INFORMATION
  Report Type: 
  Country: None (occurrence: None)
  Receive Date: 20080627
  Receipt Date: 20080612
  Transmission Date: 20081010
  Serious: Yes (Death)
  Sender: FDA-Public Use
  Company Number: 2008AL005359

PATIENT
  Age: 83 Year
  Sex: Female
  Weight: 68.0396 kg

DRUGS (7)
  1. DIGOXIN                     (AMIDE) [Suspect]
     Indication: ATRIAL FIBRILLATION
     Dosage: 0.25MG DAILY PO
     Route: 048
     Dates: start: 20020101, end: 20071018
  2. LASIX [Concomitant]
  3. NORVASC [Concomitant]
  4. DYAZIDE [Concomitant]
  5. MICARDIS [Concomitant]
  6. TRICOR [Concomitant]
  7. COUMADIN [Concomitant]

REACTIONS (9)
  - ASTHENIA [None]
  - DYSPNOEA [None]
  - FEELING ABNORMAL [None]
  - HEAD DISCOMFORT [None]
  - HEART RATE DECREASED [None]
  - HYPOTENSION [None]
  - MALAISE [None]
  - PALLOR [None]
  - PULMONARY OEDEMA [None]
